FAERS Safety Report 15886235 (Version 3)
Quarter: 2019Q2

REPORT INFORMATION
  Report Type: Spontaneous
  Country: US (occurrence: US)
  Receive Date: 20190129
  Receipt Date: 20190515
  Transmission Date: 20190711
  Serious: Yes (Hospitalization)
  Sender: FDA-Public Use
  Company Number: US-B.I. PHARMACEUTICALS,INC./RIDGEFIELD-2019-BI-003729

PATIENT
  Age: 69 Year
  Sex: Male
  Weight: 90 kg

DRUGS (42)
  1. SELENIUM SULFIDE. [Concomitant]
     Active Substance: SELENIUM SULFIDE
     Indication: SEBORRHOEA
     Dosage: STRENGTH: 2.5% LOTION/SHAMPOO?APPLY MODERATE AMOUNT TO SKIN EVERY OTHER DAY IN EVENING
     Route: 065
     Dates: start: 20160620, end: 20170321
  2. CEFEPIME [Concomitant]
     Active Substance: CEFEPIME HYDROCHLORIDE
     Indication: PRODUCT USED FOR UNKNOWN INDICATION
     Route: 065
     Dates: start: 20160405
  3. EUCERIN [Concomitant]
     Active Substance: ENSULIZOLE\EUCERIN\OCTINOXATE\OCTISALATE\TITANIUM DIOXIDE\ZINC OXIDE
     Indication: PRODUCT USED FOR UNKNOWN INDICATION
     Dosage: GIVE AT 11:00 HOURS
     Route: 061
     Dates: start: 20160210, end: 20170321
  4. MELATONIN [Concomitant]
     Active Substance: MELATONIN
     Indication: PRODUCT USED FOR UNKNOWN INDICATION
     Dosage: CAPSULE/TABLET
     Route: 048
     Dates: start: 20161129, end: 20170321
  5. NITROGLYCERIN. [Concomitant]
     Active Substance: NITROGLYCERIN
     Indication: BLOOD PRESSURE SYSTOLIC ABNORMAL
     Dosage: 2%
     Route: 061
     Dates: start: 20160210
  6. SIMETHICONE (DIMETHICONE) [Concomitant]
     Active Substance: DIMETHICONE
     Indication: DYSPEPSIA
  7. ALPRAZOLAM. [Concomitant]
     Active Substance: ALPRAZOLAM
     Indication: ANXIETY
     Route: 048
     Dates: start: 20161201, end: 20170321
  8. DOCUSATE [Concomitant]
     Active Substance: DOCUSATE
     Indication: FAECES SOFT
     Route: 054
     Dates: start: 20160210, end: 20170321
  9. METFORMIN [Concomitant]
     Active Substance: METFORMIN HYDROCHLORIDE
     Indication: PRODUCT USED FOR UNKNOWN INDICATION
     Dosage: SUSTAINED ACTION (SA)?GIVE AT 11:00 HOURS
     Route: 048
     Dates: start: 20161024, end: 20170321
  10. METOPROLOL TARTRATE. [Concomitant]
     Active Substance: METOPROLOL TARTRATE
     Indication: HEART RATE ABNORMAL
  11. NYSTATIN. [Concomitant]
     Active Substance: NYSTATIN
     Indication: FUNGAL INFECTION
     Dosage: POWDER?GIVE AT 11:00-19:00 HOURS
     Route: 061
     Dates: start: 20160210, end: 20170321
  12. SELENIUM SULFIDE. [Concomitant]
     Active Substance: SELENIUM SULFIDE
     Indication: DERMATITIS
  13. SIMETHICONE (DIMETHICONE) [Concomitant]
     Active Substance: DIMETHICONE
     Indication: FLATULENCE
     Dosage: CHEW TWO TABLETS BY MOUTH FOUR TIMES A DAY
     Route: 048
     Dates: start: 20160210, end: 20170321
  14. LIDOCAINE. [Concomitant]
     Active Substance: LIDOCAINE
     Indication: ORAL PAIN
     Dosage: LIQUID?SWISH AND SWALLOW
     Route: 048
  15. METHENAMINE HIPPURATE. [Concomitant]
     Active Substance: METHENAMINE HIPPURATE
     Indication: PRODUCT USED FOR UNKNOWN INDICATION
     Dosage: GIVE AT 11:00-23:00 HOURS
     Route: 048
     Dates: start: 20160210, end: 20170321
  16. PRAZOSIN. [Concomitant]
     Active Substance: PRAZOSIN
     Indication: PRODUCT USED FOR UNKNOWN INDICATION
     Dosage: GIVE AT 11:00-23:00 HOURS
     Route: 048
     Dates: start: 20160622, end: 20170321
  17. RANITIDINE. [Concomitant]
     Active Substance: RANITIDINE
     Indication: PRODUCT USED FOR UNKNOWN INDICATION
     Dosage: GIVE AT 11:00-23:00 HOURS
     Route: 048
     Dates: start: 20160308, end: 20170321
  18. ACETAMINOPHEN. [Concomitant]
     Active Substance: ACETAMINOPHEN
     Indication: PAIN
  19. DEXTROSE. [Concomitant]
     Active Substance: DEXTROSE
     Indication: BLOOD GLUCOSE ABNORMAL
     Dosage: GIVE ADDITIONAL 30GM MOUTH IN 15 MINUTES IF BS STILL {70.
     Route: 048
     Dates: start: 20160210, end: 20170321
  20. DEXTROSE. [Concomitant]
     Active Substance: DEXTROSE
     Indication: DYSPHAGIA
  21. FERROUS SULFATE. [Concomitant]
     Active Substance: FERROUS SULFATE
     Indication: IRON DEFICIENCY ANAEMIA
     Dosage: GIVE AT 11:00 AND 23:00 HOURS
     Route: 048
     Dates: start: 20160701, end: 20170321
  22. GLUCAGON. [Concomitant]
     Active Substance: GLUCAGON
     Indication: DYSPHAGIA
  23. METOPROLOL TARTRATE. [Concomitant]
     Active Substance: METOPROLOL TARTRATE
     Indication: BLOOD PRESSURE SYSTOLIC ABNORMAL
     Route: 048
     Dates: start: 20160210, end: 20170321
  24. POLYVINYL ALCOHOL W/SODIUM CHLORIDE [Concomitant]
     Indication: DRY EYE
     Route: 065
     Dates: start: 20160223, end: 20170321
  25. GLUCAGON. [Concomitant]
     Active Substance: GLUCAGON
     Indication: BLOOD GLUCOSE ABNORMAL
     Route: 030
     Dates: start: 20160210, end: 20170321
  26. MIDODRINE [Concomitant]
     Active Substance: MIDODRINE
     Indication: PRODUCT USED FOR UNKNOWN INDICATION
     Route: 048
     Dates: start: 20160615, end: 20170321
  27. MONTELUKAST [Concomitant]
     Active Substance: MONTELUKAST SODIUM
     Indication: RHINITIS ALLERGIC
     Dosage: GIVE AT 11:00 HOURS
     Route: 048
     Dates: start: 20160210, end: 20170321
  28. ACETAMINOPHEN. [Concomitant]
     Active Substance: ACETAMINOPHEN
     Indication: PYREXIA
     Dosage: NTE: 3000 MG OF ACETAMINOPHEN /DAY
     Route: 048
     Dates: start: 20160210, end: 20170321
  29. ALPRAZOLAM. [Concomitant]
     Active Substance: ALPRAZOLAM
     Dosage: MAY GIVE ADDITONAL 0.5MG IF 1 MG ALPRAZOLOM DOSE IS INNEFECTIVE.
     Route: 048
     Dates: start: 20161129, end: 20170321
  30. ATORVASTATIN [Concomitant]
     Active Substance: ATORVASTATIN
     Indication: DIABETES MELLITUS
     Route: 048
     Dates: start: 20161203, end: 20170321
  31. DIAZEPAM. [Concomitant]
     Active Substance: DIAZEPAM
     Indication: MUSCLE SPASMS
     Dosage: SCHEDULED FOR 2300 PER PATIENT REQUEST?AT BEDTIME
     Route: 048
     Dates: start: 20160210, end: 20170321
  32. DOCUSATE [Concomitant]
     Active Substance: DOCUSATE
     Indication: CONSTIPATION
     Route: 048
     Dates: start: 20160907, end: 20170321
  33. GUAIFENESIN. [Concomitant]
     Active Substance: GUAIFENESIN
     Indication: PRODUCT USED FOR UNKNOWN INDICATION
     Dosage: GIVE AT 07:00-19:00 HOURS PER PATIENT^S REQUEST
     Route: 048
     Dates: start: 20160603, end: 20170321
  34. PRADAXA [Suspect]
     Active Substance: DABIGATRAN ETEXILATE MESYLATE
     Indication: ATRIAL FLUTTER
     Route: 048
     Dates: start: 20161201, end: 20170321
  35. PRADAXA [Suspect]
     Active Substance: DABIGATRAN ETEXILATE MESYLATE
     Indication: CEREBROVASCULAR ACCIDENT PROPHYLAXIS
  36. DIPHENHYDRAMINE. [Concomitant]
     Active Substance: DIPHENHYDRAMINE
     Indication: SLEEP DISORDER
     Route: 048
     Dates: start: 20160210, end: 20170321
  37. LIDOCAINE. [Concomitant]
     Active Substance: LIDOCAINE
     Indication: OROPHARYNGEAL PAIN
  38. NITROGLYCERIN. [Concomitant]
     Active Substance: NITROGLYCERIN
     Indication: BLOOD PRESSURE DIASTOLIC ABNORMAL
  39. ACETIC ACID W/ALUMINIUM ACETATE [Concomitant]
     Indication: EAR PRURITUS
     Dosage: SOLUTION, OTIC
     Route: 065
     Dates: start: 20160906, end: 20170321
  40. CLOTRIMAZOLE. [Concomitant]
     Active Substance: CLOTRIMAZOLE
     Indication: FUNGAL INFECTION
     Route: 061
     Dates: start: 20160210, end: 20170321
  41. HYDROCORTISONE. [Concomitant]
     Active Substance: HYDROCORTISONE
     Indication: SEBORRHOEIC DERMATITIS
     Dosage: MIX WITH KETOCONAZOLE CREAM AND APPLY TO FACE FOR SEBORRHEIC DERMATITIS,?GIVE AT 11:00-19:00 HOURS
     Route: 061
     Dates: start: 20170209, end: 20170321
  42. LACTOBACILLUS [Concomitant]
     Active Substance: LACTOBACILLUS ACIDOPHILUS
     Indication: PRODUCT USED FOR UNKNOWN INDICATION
     Dosage: GIVE AT 11:00-19:00 HOURS
     Route: 048
     Dates: start: 20161117, end: 20170321

REACTIONS (1)
  - Retinal haemorrhage [Unknown]

NARRATIVE: CASE EVENT DATE: 20170131
